FAERS Safety Report 6305790-9 (Version None)
Quarter: 2009Q3

REPORT INFORMATION
  Report Type: 
  Country: None (occurrence: None)
  Receive Date: 20090806
  Receipt Date: 20090401
  Transmission Date: 20100115
  Serious: Yes (Other)
  Sender: FDA-Public Use
  Company Number: 1-17979560

PATIENT
  Sex: Female

DRUGS (1)
  1. BACTRIM [Suspect]
     Dosage: ORAL
     Route: 048

REACTIONS (2)
  - GASTROINTESTINAL DISORDER [None]
  - STEVENS-JOHNSON SYNDROME [None]
